FAERS Safety Report 8972590 (Version 1)
Quarter: 2012Q4

REPORT INFORMATION
  Report Type: 
  Country: GB (occurrence: BR)
  Receive Date: 20121219
  Receipt Date: 20121219
  Transmission Date: 20130627
  Serious: Yes (Hospitalization)
  Sender: FDA-Public Use
  Company Number: GB-SANOFI-AVENTIS-2012SA090804

PATIENT
  Age: 43 Year
  Sex: Female
  Weight: 67 kg

DRUGS (13)
  1. LEFLUNOMIDE [Suspect]
     Indication: DRUG USE FOR UNKNOWN INDICATION
     Route: 065
     Dates: start: 20100422, end: 20110323
  2. INVESTIGATIONAL DRUG [Suspect]
     Indication: RHEUMATOID ARTHRITIS
     Route: 042
     Dates: start: 20080904
  3. INVESTIGATIONAL DRUG [Suspect]
     Indication: RHEUMATOID ARTHRITIS
     Route: 042
  4. PREDNISONE [Suspect]
     Indication: RHEUMATOID ARTHRITIS
     Route: 065
     Dates: start: 20081121, end: 20110512
  5. METHOTREXATE [Suspect]
     Indication: RHEUMATOID ARTHRITIS
     Dosage: frequency- 1 in 1 week
     Route: 065
     Dates: start: 20091020, end: 20110512
  6. DIPYRON [Concomitant]
     Dates: start: 200802
  7. FOLIC ACID [Concomitant]
     Dates: start: 20100311
  8. DIMETICONE [Concomitant]
     Dates: start: 20110322
  9. METFORMIN [Concomitant]
     Dates: start: 2008, end: 20110118
  10. SIMVASTATIN [Concomitant]
     Dates: start: 20090903, end: 20110410
  11. ALUMINIUM HYDROXIDE [Concomitant]
     Dates: start: 20110322, end: 20110401
  12. OMEPRAZOLE [Concomitant]
     Dates: start: 20091206
  13. IMOSEC [Concomitant]
     Dates: start: 20110402

REACTIONS (2)
  - Peritonitis bacterial [Recovered/Resolved]
  - Hepatic cirrhosis [Recovered/Resolved]
